FAERS Safety Report 25954349 (Version 1)
Quarter: 2025Q4

REPORT INFORMATION
  Report Type: Spontaneous
  Country: EU (occurrence: EU)
  Receive Date: 20251023
  Receipt Date: 20251023
  Transmission Date: 20260117
  Serious: Yes (Other)
  Sender: UCB
  Company Number: None

PATIENT
  Age: 67 Year

DRUGS (1)
  1. BRIVIACT [Suspect]
     Active Substance: BRIVARACETAM
     Indication: Transient global amnesia
     Dosage: 25 MILLIGRAM, 2X/DAY (BID)

REACTIONS (1)
  - Erythema [Recovered/Resolved]
